FAERS Safety Report 8544017-4 (Version None)
Quarter: 2012Q3

REPORT INFORMATION
  Report Type: 
  Country: None (occurrence: None)
  Receive Date: 20120727
  Receipt Date: 20120716
  Transmission Date: 20120928
  Serious: Yes (Hospitalization)
  Sender: FDA-Public Use
  Company Number: US-BAYER-2012-072837

PATIENT
  Age: 28 Year
  Sex: Female
  Weight: 113.38 kg

DRUGS (10)
  1. YASMIN [Suspect]
  2. AMOXICILLIN [Concomitant]
     Dosage: 875 MG, UNK
     Route: 048
  3. AUGMENTIN '500' [Concomitant]
  4. AMOXICILLIN AND CLAVULANATE POTASSIUM [Concomitant]
  5. KEFLEX [Concomitant]
     Dosage: 500 MG , 1 THREE TIMES DAILY [TIMES] 10 DAYS
     Route: 048
     Dates: start: 20080104
  6. NAPROXEN [Concomitant]
     Route: 048
  7. CHANTIX [Concomitant]
     Dosage: 30 MG, ONE TWICE A DAY
     Route: 048
     Dates: start: 20071207
  8. FEXOFENADINE [Concomitant]
     Dosage: 180 MG, UNK
     Route: 048
     Dates: start: 20080104
  9. ALLEGRA [Concomitant]
     Dosage: 180 MG, UNK
     Route: 048
     Dates: start: 20080104
  10. CEPHALEXIN [Concomitant]
     Dosage: 500 MG , 1 THREE TIMES DAILY [TIMES] 10 DAYS
     Route: 048
     Dates: start: 20080104

REACTIONS (2)
  - DEEP VEIN THROMBOSIS [None]
  - THROMBOPHLEBITIS SUPERFICIAL [None]
